FAERS Safety Report 13627234 (Version 9)
Quarter: 2018Q2

REPORT INFORMATION
  Report Type: Spontaneous
  Country: US (occurrence: US)
  Receive Date: 20170607
  Receipt Date: 20180529
  Transmission Date: 20180711
  Serious: Yes (Hospitalization)
  Sender: FDA-Public Use
  Company Number: US-PFIZER INC-2017247556

PATIENT
  Age: 80 Year
  Sex: Female
  Weight: 65.32 kg

DRUGS (9)
  1. IBRANCE [Suspect]
     Active Substance: PALBOCICLIB
     Indication: BREAST CANCER METASTATIC
     Dosage: UNK
  2. LEXAPRO [Concomitant]
     Active Substance: ESCITALOPRAM OXALATE
     Indication: DEPRESSION
     Dosage: 10 MG, 1X/DAY
     Dates: start: 201611
  3. OMEPRAZOLE. [Concomitant]
     Active Substance: OMEPRAZOLE
     Indication: GASTROOESOPHAGEAL REFLUX DISEASE
     Dosage: 20 MG, DAILY
     Dates: start: 2017
  4. IBRANCE [Suspect]
     Active Substance: PALBOCICLIB
     Dosage: 125 MG, CYCLIC (ONE CAPSULES DAILY ABOUT 6PM AFTER DINNER FOR 21 DAYS EVERY 4 WEEKS)
     Dates: start: 201611
  5. IBRANCE [Suspect]
     Active Substance: PALBOCICLIB
     Dosage: 125 MG, CYCLIC (ONE CAPSULES DAILY ABOUT 6PM AFTER DINNER FOR 21 DAYS EVERY 4 WEEKS)
     Dates: start: 201611
  6. LETROZOLE. [Concomitant]
     Active Substance: LETROZOLE
     Indication: BREAST CANCER METASTATIC
     Dosage: 2.5 MG, 1X/DAY (ABOUT 10: 00 AM)
     Dates: start: 201611
  7. XANAX [Concomitant]
     Active Substance: ALPRAZOLAM
     Indication: DEPRESSION
     Dosage: 0.5 MG, ONE A DAY BUT CAN TAKE UP TO THREE DAY
     Dates: start: 201611
  8. CALTRATE 600+D [Concomitant]
     Indication: BONE DISORDER
     Dosage: 1 DF, DAILY
     Dates: start: 2017
  9. IBRANCE [Suspect]
     Active Substance: PALBOCICLIB
     Dosage: 125 MG, 1X/DAY
     Route: 048
     Dates: start: 201611

REACTIONS (9)
  - Auditory disorder [Unknown]
  - Full blood count decreased [Unknown]
  - Vertigo [Recovered/Resolved]
  - Diarrhoea [Unknown]
  - Hair growth abnormal [Unknown]
  - Hypoacusis [Unknown]
  - Alopecia [Not Recovered/Not Resolved]
  - Vertigo positional [Recovered/Resolved]
  - Fall [Recovered/Resolved]

NARRATIVE: CASE EVENT DATE: 201704
